FAERS Safety Report 4784436-5 (Version None)
Quarter: 2005Q3

REPORT INFORMATION
  Report Type: 
  Country: None (occurrence: None)
  Receive Date: 20050929
  Receipt Date: 20050929
  Transmission Date: 20060218
  Serious: Yes (Other)
  Sender: FDA-Public Use
  Company Number: None

PATIENT
  Age: 38 Year
  Sex: Female
  Weight: 96 kg

DRUGS (1)
  1. PROMETHAZINE [Suspect]
     Indication: NAUSEA
     Dosage: 25 MG  IV BOLUS   1 DOSE
     Route: 040
     Dates: start: 20040524, end: 20040524

REACTIONS (3)
  - INFUSION SITE PHLEBITIS [None]
  - OEDEMA PERIPHERAL [None]
  - PAIN IN EXTREMITY [None]
